FAERS Safety Report 9759853 (Version 1)
Quarter: 2013Q4

REPORT INFORMATION
  Report Type: Spontaneous
  Country: RS (occurrence: None)
  Receive Date: 20131212
  Receipt Date: 20131212
  Transmission Date: 20140711
  Serious: Yes (Other)
  Sender: FDA-Public Use
  Company Number: EUS-2013-00791

PATIENT
  Sex: 0

DRUGS (1)
  1. ASPARAGINASE (UNSPECIFIED) (ASPARAGINASE) [Suspect]

REACTIONS (2)
  - Hypoproteinaemia [None]
  - Oedema peripheral [None]
